FAERS Safety Report 22538964 (Version 1)
Quarter: 2023Q2

REPORT INFORMATION
  Report Type: Spontaneous
  Country: US (occurrence: US)
  Receive Date: 20230609
  Receipt Date: 20230609
  Transmission Date: 20230722
  Serious: Yes (Hospitalization)
  Sender: FDA-Public Use
  Company Number: US-JNJFOC-20230573637

PATIENT
  Age: 76 Year
  Sex: Female
  Weight: 60.836 kg

DRUGS (1)
  1. TECLISTAMAB [Suspect]
     Active Substance: TECLISTAMAB
     Indication: Plasma cell myeloma refractory
     Dosage: RECEIVED STEP-UP DOSES X 3, AND 9 TREATMENT DOSES (TOTAL OF 12 DOSES).?LAST DOSE ON 23-MAY-2023.
     Route: 058
     Dates: start: 20230314, end: 20230523

REACTIONS (2)
  - Neutropenia [Not Recovered/Not Resolved]
  - Pneumonia [Not Recovered/Not Resolved]

NARRATIVE: CASE EVENT DATE: 20230529
